FAERS Safety Report 16978704 (Version 1)
Quarter: 2019Q4

REPORT INFORMATION
  Report Type: Spontaneous
  Country: US (occurrence: US)
  Receive Date: 20191031
  Receipt Date: 20191031
  Transmission Date: 20200122
  Serious: No
  Sender: FDA-Public Use
  Company Number: US-SUNOVION-2019SUN004488

PATIENT
  Age: 67 Year
  Sex: Female

DRUGS (2)
  1. LONHALA MAGNAIR [Suspect]
     Active Substance: GLYCOPYRROLATE
     Dosage: 25 ?G, BID
     Route: 055
  2. ALBUTEROL. [Suspect]
     Active Substance: ALBUTEROL

REACTIONS (3)
  - Oxygen saturation decreased [Unknown]
  - Tremor [Unknown]
  - Palpitations [Unknown]
